FAERS Safety Report 23822548 (Version 2)
Quarter: 2024Q2

REPORT INFORMATION
  Report Type: Spontaneous
  Country: FR (occurrence: FR)
  Receive Date: 20240506
  Receipt Date: 20240510
  Transmission Date: 20240716
  Serious: Yes (Hospitalization, Other)
  Sender: FDA-Public Use
  Company Number: None

PATIENT
  Age: 11 Year
  Sex: Male

DRUGS (11)
  1. HYDROCORTISONE [Suspect]
     Active Substance: HYDROCORTISONE
     Indication: Leprosy
     Route: 064
     Dates: start: 20111111, end: 20120427
  2. LAMPRENE [Suspect]
     Active Substance: CLOFAZIMINE
     Indication: Leprosy
     Route: 064
     Dates: start: 20110909, end: 20120427
  3. DAPSONE\FERROUS OXALATE [Suspect]
     Active Substance: DAPSONE\FERROUS OXALATE
     Indication: Leprosy
     Route: 064
     Dates: start: 20110909, end: 20120427
  4. ACTONEL [Suspect]
     Active Substance: RISEDRONATE SODIUM
     Indication: Product used for unknown indication
     Route: 064
     Dates: start: 20110909, end: 20111118
  5. AMITRIPTYLINE HYDROCHLORIDE [Suspect]
     Active Substance: AMITRIPTYLINE HYDROCHLORIDE
     Indication: Leprosy
     Route: 064
     Dates: start: 20110909, end: 201112
  6. PREDNISONE [Suspect]
     Active Substance: PREDNISONE
     Indication: Leprosy
     Route: 064
     Dates: start: 20110909, end: 20111110
  7. RIFAMPIN [Suspect]
     Active Substance: RIFAMPIN
     Indication: Leprosy
     Route: 064
     Dates: start: 20110909, end: 20120427
  8. LYRICA [Suspect]
     Active Substance: PREGABALIN
     Indication: Leprosy
     Route: 064
     Dates: start: 20110909, end: 201212
  9. ESOMEPRAZOLE SODIUM [Suspect]
     Active Substance: ESOMEPRAZOLE SODIUM
     Indication: Product used for unknown indication
     Route: 064
     Dates: start: 20110909, end: 201112
  10. PLAQUENIL [Suspect]
     Active Substance: HYDROXYCHLOROQUINE SULFATE
     Indication: Leprosy
     Route: 064
     Dates: start: 20110909, end: 20120106
  11. CHOLECALCIFEROL [Suspect]
     Active Substance: CHOLECALCIFEROL
     Indication: Product used for unknown indication
     Route: 064
     Dates: start: 20110909, end: 20120106

REACTIONS (4)
  - Preterm premature rupture of membranes [Recovered/Resolved]
  - Foetal growth restriction [Recovered/Resolved]
  - Autism spectrum disorder [Not Recovered/Not Resolved]
  - Maternal exposure during pregnancy [Recovered/Resolved]
